FAERS Safety Report 6243069-4 (Version None)
Quarter: 2009Q2

REPORT INFORMATION
  Report Type: 
  Country: None (occurrence: None)
  Receive Date: 20090617
  Receipt Date: 20080521
  Transmission Date: 20091009
  Serious: No
  Sender: FDA-Public Use
  Company Number: 275612

PATIENT
  Age: 60 Year
  Sex: Male

DRUGS (6)
  1. LEVEMIR [Suspect]
     Indication: INSULIN-REQUIRING TYPE 2 DIABETES MELLITUS
     Dosage: 9 IU, QD, SUBCUTANEOUS
     Route: 058
     Dates: start: 20080401
  2. LIPITOR [Concomitant]
  3. LYRICA [Concomitant]
  4. PLAVIX [Concomitant]
  5. LIPOSOL (CLOFIBRATE, NICOTINYL TARTRATE) [Concomitant]
  6. HUMALOG KWIKPEN MIX (INSULIN LISPRO, INSULIN LISPRO PROTAMINE SUSPENSI [Concomitant]

REACTIONS (1)
  - BLOOD GLUCOSE INCREASED [None]
